FAERS Safety Report 7208524-9 (Version None)
Quarter: 2011Q1

REPORT INFORMATION
  Report Type: 
  Country: None (occurrence: None)
  Receive Date: 20110104
  Receipt Date: 20100716
  Transmission Date: 20110831
  Serious: Yes (Hospitalization, Other)
  Sender: FDA-Public Use
  Company Number: US-BAYER-201011984NA

PATIENT
  Sex: Female
  Weight: 140.91 kg

DRUGS (23)
  1. METFORMIN [Concomitant]
     Dosage: 2000 MG (DAILY DOSE), BID, ORAL
     Route: 048
  2. EPINEPHRINE [Concomitant]
     Dates: start: 20090201
  3. TRAMADOL [Concomitant]
     Route: 048
  4. YAZ [Suspect]
     Indication: PRODUCT USED FOR UNKNOWN INDICATION
     Dosage: UNK UNK, QD
     Route: 048
     Dates: start: 20060101
  5. HEPARIN [Concomitant]
     Dosage: HEPARIN DRIP
  6. AMARYL [Concomitant]
     Dosage: DAILY.
     Route: 048
  7. LANTUS [Concomitant]
     Dosage: 60 UNITS. AT BEDTIME.
     Route: 058
  8. YASMIN [Suspect]
     Indication: PRODUCT USED FOR UNKNOWN INDICATION
     Route: 048
  9. LEXAPRO [Concomitant]
  10. SEROQUEL [Concomitant]
     Dosage: BEDTIME
     Route: 048
  11. HUMALOG [Concomitant]
     Dosage: 30 UNITS
     Route: 058
  12. LEXAPRO [Concomitant]
     Dosage: DAILY
     Route: 048
  13. WARFARIN [Concomitant]
  14. LYRICA [Concomitant]
     Dosage: 150 MG (DAILY DOSE), BID,
  15. DEPO-MEDROL [Concomitant]
     Dosage: INTRA-ARTICULAR.
     Dates: start: 20090201
  16. BENZTROPINE MESYLATE [Concomitant]
     Dosage: 1MG AT HOUR OF SLEEP.
  17. COUMADIN [Concomitant]
     Dosage: 1-1/2 TABLETS DAILY.
     Route: 048
  18. GENERAL ANESTHESIA [Concomitant]
  19. HUMALOG [Concomitant]
     Dosage: 70/30, 50 UNITS TWICE DAILY
     Route: 058
  20. LIDOCAINE HYDROCHLORIDE IN PLASTIC CONTAINER [Concomitant]
     Dosage: 1 CC OF 1%
     Dates: start: 20090201
  21. KEFLEX [Concomitant]
  22. BACTRIM [Concomitant]
  23. GABAPENTIN [Concomitant]
     Route: 048

REACTIONS (10)
  - DYSPNOEA [None]
  - COORDINATION ABNORMAL [None]
  - LIGAMENT RUPTURE [None]
  - PAIN [None]
  - WEIGHT BEARING DIFFICULTY [None]
  - PULMONARY EMBOLISM [None]
  - ABDOMINAL PAIN [None]
  - OEDEMA PERIPHERAL [None]
  - THROMBOSIS [None]
  - MUSCULAR WEAKNESS [None]
